FAERS Safety Report 14479209 (Version 2)
Quarter: 2018Q1

REPORT INFORMATION
  Report Type: Report from Study
  Country: US (occurrence: US)
  Receive Date: 20180202
  Receipt Date: 20180205
  Transmission Date: 20180509
  Serious: Yes (Other)
  Sender: FDA-Public Use
  Company Number: US-ROCHE-2045581

PATIENT
  Sex: Male
  Weight: 25.9 kg

DRUGS (6)
  1. NUTROPIN AQ [Suspect]
     Active Substance: SOMATROPIN
     Indication: GROWTH HORMONE DEFICIENCY
     Dosage: ONGOING:YES
     Route: 058
     Dates: start: 2005
  2. FLONASE [Concomitant]
     Active Substance: FLUTICASONE PROPIONATE
  3. CHLORHEXIDINE GLUCONATE. [Concomitant]
     Active Substance: CHLORHEXIDINE GLUCONATE
     Route: 061
  4. MIRALAX [Concomitant]
     Active Substance: POLYETHYLENE GLYCOL 3350
     Route: 048
  5. ZANTAC [Concomitant]
     Active Substance: RANITIDINE HYDROCHLORIDE
     Route: 065
  6. XOPENEX [Concomitant]
     Active Substance: LEVALBUTEROL HYDROCHLORIDE
     Route: 050

REACTIONS (15)
  - Vomiting [Unknown]
  - Balance disorder [Unknown]
  - Seasonal allergy [Unknown]
  - Cortical visual impairment [Not Recovered/Not Resolved]
  - Skin ulcer [Not Recovered/Not Resolved]
  - Deafness [Not Recovered/Not Resolved]
  - Constipation [Unknown]
  - Hypotonia [Not Recovered/Not Resolved]
  - Asthenia [Unknown]
  - Fatigue [Unknown]
  - Muscular weakness [Unknown]
  - Ear infection [Unknown]
  - Dry skin [Unknown]
  - Urinary incontinence [Unknown]
  - Fall [Unknown]
